FAERS Safety Report 15390514 (Version 1)
Quarter: 2018Q3

REPORT INFORMATION
  Report Type: Spontaneous
  Country: US (occurrence: US)
  Receive Date: 20180909
  Receipt Date: 20180909
  Transmission Date: 20181010
  Serious: Yes (Death, Life-Threatening, Hospitalization)
  Sender: FDA-Public Use
  Company Number: None

PATIENT
  Age: 80 Year
  Sex: Female
  Weight: 67.5 kg

DRUGS (3)
  1. OPDIVO [Suspect]
     Active Substance: NIVOLUMAB
     Indication: MALIGNANT MELANOMA
     Dosage: ?          OTHER FREQUENCY:EVERY TWO WEEKS;?
     Route: 042
     Dates: start: 20180801, end: 20180815
  2. VITAMIN C [Concomitant]
     Active Substance: ASCORBIC ACID
  3. MULTIVITAMINS [Concomitant]
     Active Substance: VITAMINS

REACTIONS (15)
  - Constipation [None]
  - Hyperhidrosis [None]
  - Vision blurred [None]
  - Fatigue [None]
  - Speech disorder [None]
  - Peripheral swelling [None]
  - Dysphagia [None]
  - Muscular weakness [None]
  - Hypopnoea [None]
  - Tremor [None]
  - Hallucination [None]
  - Gait inability [None]
  - Pollakiuria [None]
  - Blood creatine phosphokinase increased [None]
  - Asthenia [None]

NARRATIVE: CASE EVENT DATE: 20180816
